FAERS Safety Report 6339541-9 (Version None)
Quarter: 2009Q3

REPORT INFORMATION
  Report Type: 
  Country: None (occurrence: None)
  Receive Date: 20090827
  Receipt Date: 20090709
  Transmission Date: 20100115
  Serious: No
  Sender: FDA-Public Use
  Company Number: 001236

PATIENT
  Sex: Female
  Weight: 54.8 kg

DRUGS (8)
  1. LACOSAMIDE [Suspect]
     Dosage: (50 MG BID)
     Dates: start: 20090707
  2. KEPPRA [Suspect]
     Indication: CONVULSION
  3. OXCARBAZEPINE [Concomitant]
  4. IMODIUM /00384302/ [Concomitant]
  5. ELECTROLYTE SOLUTIONS [Concomitant]
  6. QUERCETIN [Concomitant]
  7. MULTIPLE VITAMINS [Concomitant]
  8. ATIVAN [Concomitant]

REACTIONS (7)
  - AMNESIA [None]
  - BALANCE DISORDER [None]
  - DIZZINESS [None]
  - FEELING ABNORMAL [None]
  - HYPOTENSION [None]
  - SENSORY DISTURBANCE [None]
  - URINARY INCONTINENCE [None]
